FAERS Safety Report 24246433 (Version 1)
Quarter: 2024Q3

REPORT INFORMATION
  Report Type: Spontaneous
  Country: CA (occurrence: CA)
  Receive Date: 20240825
  Receipt Date: 20240825
  Transmission Date: 20241016
  Serious: Yes (Other)
  Sender: BAXTER
  Company Number: CA-BAXTER-2024BAX023355

PATIENT
  Age: 7 Year
  Sex: Male
  Weight: 30 kg

DRUGS (18)
  1. SODIUM CHLORIDE [Suspect]
     Active Substance: SODIUM CHLORIDE
     Indication: Product used for unknown indication
     Dosage: DOSAGE FORM: NOT SPECIFIED, 100 ML
     Route: 065
  2. ELAPRASE [Suspect]
     Active Substance: IDURSULFASE
     Indication: Mucopolysaccharidosis II
     Dosage: DOSAGE FORM: CONCENTRATE FOR SOLUTION FOR INFUSION, SINGLE USE, 15.8 MG 1 EVERY 1 WEEK
     Route: 042
  3. ELAPRASE [Suspect]
     Active Substance: IDURSULFASE
     Dosage: DOSAGE FORM: CONCENTRATE FOR SOLUTION FOR INFUSION, SINGLE USE, 3 DOSAGE FORMS 1 EVERY 1 WEEK
     Route: 042
  4. ELAPRASE [Suspect]
     Active Substance: IDURSULFASE
     Dosage: DOSAGE FORM: CONCENTRATE FOR SOLUTION FOR INFUSION, SINGLE USE, 15.5 MG, 1 EVERY 1 WEEK
     Route: 042
  5. ELAPRASE [Suspect]
     Active Substance: IDURSULFASE
     Dosage: DOSAGE FORM: CONCENTRATE FOR SOLUTION FOR INFUSION, SINGLE USE, 3 DOSAGE FORMS 1 EVERY 1 WEEK
     Route: 065
  6. ELAPRASE [Suspect]
     Active Substance: IDURSULFASE
     Dosage: DOSAGE FORM: CONCENTRATE FOR SOLUTION FOR INFUSION, SINGLE USE, 16.15 MG 1 EVERY 1 WEEK
     Route: 065
  7. ELAPRASE [Suspect]
     Active Substance: IDURSULFASE
     Dosage: DOSAGE FORM: CONCENTRATE FOR SOLUTION FOR INFUSION, SINGLE USE, 16.5 MG 1 EVERY 1 WEEK
     Route: 050
  8. ELAPRASE [Suspect]
     Active Substance: IDURSULFASE
     Dosage: DOSAGE FORM: CONCENTRATE FOR SOLUTION FOR INFUSION, SINGLE USE, 16.15 MG 1 EVERY 1 WEEK
     Route: 050
  9. ELAPRASE [Suspect]
     Active Substance: IDURSULFASE
     Dosage: DOSAGE FORM: CONCENTRATE FOR SOLUTION FOR INFUSION, SINGLE USE, 3 DOSAGE FORMS 1 EVERY 1 WEEK
     Route: 050
  10. ELAPRASE [Suspect]
     Active Substance: IDURSULFASE
     Dosage: DOSAGE FORM: CONCENTRATE FOR SOLUTION FOR INFUSION, SINGLE USE, 16.3 MG 1 EVERY 1 WEEK
     Route: 050
  11. ELAPRASE [Suspect]
     Active Substance: IDURSULFASE
     Dosage: DOSAGE FORM: CONCENTRATE FOR SOLUTION FOR INFUSION, SINGLE USE, 1 EVERY 1 WEEK
     Route: 042
  12. ELAPRASE [Suspect]
     Active Substance: IDURSULFASE
     Dosage: DOSAGE FORM: CONCENTRATE FOR SOLUTION FOR INFUSION, SINGLE USE, 16.6 MG 1 EVERY 1 WEEK
     Route: 050
  13. ELAPRASE [Suspect]
     Active Substance: IDURSULFASE
     Dosage: DOSAGE FORM: CONCENTRATE FOR SOLUTION FOR INFUSION, SINGLE USE, 16.3 MG 1 EVERY 1 WEEK
     Route: 050
  14. ELAPRASE [Suspect]
     Active Substance: IDURSULFASE
     Dosage: DOSAGE FORM: CONCENTRATE FOR SOLUTION FOR INFUSION, SINGLE USE
     Route: 042
  15. ELAPRASE [Suspect]
     Active Substance: IDURSULFASE
     Dosage: DOSAGE FORM: SOLUTION INTRAVENOUS, 18 MG, 1 EVERY 1 WEEK
     Route: 065
  16. BENADRYL [Concomitant]
     Active Substance: DIPHENHYDRAMINE HYDROCHLORIDE
     Dosage: DOSAGE FORM: NOT SPECIFIED
     Route: 065
  17. DIPHENHYDRAMINE [Concomitant]
     Active Substance: DIPHENHYDRAMINE
     Dosage: DOSAGE FORM: NOT SPECIFIED, 25 MG
     Route: 048
  18. TYLENOL [Concomitant]
     Active Substance: ACETAMINOPHEN
     Dosage: DOSAGE FORM: NOT SPECIFIED
     Route: 065

REACTIONS (38)
  - Aggression [Not Recovered/Not Resolved]
  - Agitation [Not Recovered/Not Resolved]
  - Behaviour disorder [Not Recovered/Not Resolved]
  - COVID-19 [Not Recovered/Not Resolved]
  - Catheter site bruise [Not Recovered/Not Resolved]
  - Catheter site discolouration [Not Recovered/Not Resolved]
  - Catheter site haemorrhage [Not Recovered/Not Resolved]
  - Contusion [Not Recovered/Not Resolved]
  - Cough [Not Recovered/Not Resolved]
  - Deafness [Not Recovered/Not Resolved]
  - Device issue [Not Recovered/Not Resolved]
  - Drug delivery system issue [Not Recovered/Not Resolved]
  - Drug resistance [Not Recovered/Not Resolved]
  - Ear infection [Not Recovered/Not Resolved]
  - Ear pain [Not Recovered/Not Resolved]
  - Fatigue [Not Recovered/Not Resolved]
  - Gait disturbance [Not Recovered/Not Resolved]
  - Grimacing [Not Recovered/Not Resolved]
  - Heart rate increased [Not Recovered/Not Resolved]
  - Inappropriate schedule of product administration [Not Recovered/Not Resolved]
  - Incorrect dose administered [Not Recovered/Not Resolved]
  - Infusion site bruising [Not Recovered/Not Resolved]
  - Infusion site haemorrhage [Not Recovered/Not Resolved]
  - Insomnia [Not Recovered/Not Resolved]
  - Irritability [Not Recovered/Not Resolved]
  - Moaning [Not Recovered/Not Resolved]
  - Mobility decreased [Not Recovered/Not Resolved]
  - Nasal congestion [Not Recovered/Not Resolved]
  - Otorrhoea [Not Recovered/Not Resolved]
  - Pain in extremity [Not Recovered/Not Resolved]
  - Patient uncooperative [Not Recovered/Not Resolved]
  - Poor quality sleep [Not Recovered/Not Resolved]
  - Poor venous access [Not Recovered/Not Resolved]
  - Recalled product administered [Not Recovered/Not Resolved]
  - Respiratory rate decreased [Not Recovered/Not Resolved]
  - Restlessness [Not Recovered/Not Resolved]
  - Skin discolouration [Not Recovered/Not Resolved]
  - Tendon disorder [Not Recovered/Not Resolved]
